FAERS Safety Report 10183167 (Version 1)
Quarter: 2014Q2

REPORT INFORMATION
  Report Type: Spontaneous
  Country: US (occurrence: US)
  Receive Date: 20140520
  Receipt Date: 20140520
  Transmission Date: 20141212
  Serious: Yes (Hospitalization)
  Sender: FDA-Public Use
  Company Number: US-BAYER-2014-071905

PATIENT
  Age: 44 Year
  Sex: Female

DRUGS (3)
  1. YASMIN [Suspect]
  2. CHLORHEXIDINE [Concomitant]
     Dosage: 0.12 %, UNK
     Dates: start: 20061118
  3. DICYCLOMINE [Concomitant]
     Dosage: UNK
     Dates: start: 20061207

REACTIONS (2)
  - Deep vein thrombosis [None]
  - Thrombophlebitis superficial [None]
